FAERS Safety Report 12055569 (Version 1)
Quarter: 2016Q1

REPORT INFORMATION
  Report Type: Spontaneous
  Country: US (occurrence: US)
  Receive Date: 20160209
  Receipt Date: 20160209
  Transmission Date: 20160526
  Serious: No
  Sender: FDA-Public Use
  Company Number: US-BAYER-2016-020309

PATIENT
  Age: 49 Year
  Sex: Female

DRUGS (1)
  1. MIRENA [Suspect]
     Active Substance: LEVONORGESTREL
     Indication: MENORRHAGIA
     Dosage: 20 MCG/24HR, UNK
     Route: 015
     Dates: start: 201507

REACTIONS (3)
  - Hypomenorrhoea [None]
  - Menorrhagia [None]
  - Therapeutic response unexpected [None]

NARRATIVE: CASE EVENT DATE: 20160122
